FAERS Safety Report 13313153 (Version 3)
Quarter: 2017Q2

REPORT INFORMATION
  Report Type: Report from Study
  Country: US (occurrence: CA)
  Receive Date: 20170309
  Receipt Date: 20170628
  Transmission Date: 20170830
  Serious: Yes (Other)
  Sender: FDA-Public Use
  Company Number: US-SUNOVION-2017SUN000999

PATIENT
  Age: 68 Year
  Sex: Female

DRUGS (24)
  1. CANDESARTAN. [Suspect]
     Active Substance: CANDESARTAN
     Indication: HYPERTENSION
     Dosage: 8 MG, BID (STARTED MORE THAN 5 YEARS AGO)
     Route: 048
  2. XOLAIR [Suspect]
     Active Substance: OMALIZUMAB
     Dosage: UNK; REGIMEN #5
     Route: 058
     Dates: start: 20160426
  3. XOLAIR [Suspect]
     Active Substance: OMALIZUMAB
     Dosage: UNK; REGIMEN #9
     Route: 058
     Dates: start: 20160912
  4. XOLAIR [Suspect]
     Active Substance: OMALIZUMAB
     Dosage: UNK; REGIMEN #13
     Route: 058
     Dates: start: 20170130
  5. ANTIHYPERTENSIVES [Concomitant]
     Active Substance: UNSPECIFIED INGREDIENT
     Indication: HYPERTENSION
     Dosage: UNK
  6. XOLAIR [Suspect]
     Active Substance: OMALIZUMAB
     Dosage: UNK; REGIMEN #12
     Route: 058
     Dates: start: 20170104
  7. XOLAIR [Suspect]
     Active Substance: OMALIZUMAB
     Dosage: UNK; REGIMEN #14
     Route: 058
     Dates: start: 20170523
  8. VENTOLIN [Concomitant]
     Active Substance: ALBUTEROL SULFATE
     Dosage: UNK
  9. ADVAIR HFA [Concomitant]
     Active Substance: FLUTICASONE PROPIONATE\SALMETEROL XINAFOATE
     Dosage: UNK
  10. ALVESCO [Concomitant]
     Active Substance: CICLESONIDE
     Dosage: UNK
  11. XOLAIR [Suspect]
     Active Substance: OMALIZUMAB
     Dosage: UNK; REGIMEN #2
     Route: 058
     Dates: start: 20160106
  12. SINGULAIR [Concomitant]
     Active Substance: MONTELUKAST SODIUM
     Dosage: UNK
  13. AMLODIPINE [Suspect]
     Active Substance: AMLODIPINE BESYLATE
     Indication: HYPERTENSION
     Dosage: 5 MG, BID (STARTED AROUND 5 YEARS AGO)
     Route: 048
  14. SPIRIVA [Concomitant]
     Active Substance: TIOTROPIUM BROMIDE MONOHYDRATE
     Dosage: UNK
     Dates: start: 20150901
  15. ATROVENT [Concomitant]
     Active Substance: IPRATROPIUM BROMIDE
     Dosage: UNK
  16. XOLAIR [Suspect]
     Active Substance: OMALIZUMAB
     Dosage: UNK; REGIMEN #3
     Route: 058
     Dates: start: 20160301
  17. XOLAIR [Suspect]
     Active Substance: OMALIZUMAB
     Dosage: UNK; REGIMEN #4
     Route: 058
     Dates: start: 20160329
  18. XOLAIR [Suspect]
     Active Substance: OMALIZUMAB
     Dosage: UNK; REGIMEN #6
     Route: 058
     Dates: start: 20160524
  19. XOLAIR [Suspect]
     Active Substance: OMALIZUMAB
     Dosage: UNK; REGIMEN #7
     Route: 058
     Dates: start: 20160621
  20. XOLAIR [Suspect]
     Active Substance: OMALIZUMAB
     Dosage: UNK; REGIMEN #10
     Route: 058
     Dates: start: 20161011
  21. XOLAIR [Suspect]
     Active Substance: OMALIZUMAB
     Dosage: UNK; REGIMEN #8
     Route: 058
     Dates: start: 20160721
  22. GLYCOPYRROLATE. [Suspect]
     Active Substance: GLYCOPYRROLATE
     Indication: ASTHMA
     Dosage: 1 DF (50 UG, 1 PUFF EVERY AM) QD
     Route: 055
     Dates: start: 201311, end: 201509
  23. XOLAIR [Suspect]
     Active Substance: OMALIZUMAB
     Indication: ASTHMA
     Dosage: 300 MG, EVERY 4 WEEKS; REGIMEN #1
     Route: 058
     Dates: start: 20151209
  24. XOLAIR [Suspect]
     Active Substance: OMALIZUMAB
     Dosage: UNK; REGIMEN #11
     Route: 058
     Dates: start: 20161206

REACTIONS (12)
  - Dyspnoea exertional [Unknown]
  - Heart rate increased [Unknown]
  - Cough [Unknown]
  - Urinary tract infection [Recovered/Resolved]
  - Blood pressure increased [Unknown]
  - Hypoventilation [Unknown]
  - Respiratory rate increased [Unknown]
  - Alopecia [Not Recovered/Not Resolved]
  - Forced expiratory volume decreased [Unknown]
  - Fear of injection [Unknown]
  - Sensitivity to weather change [Unknown]
  - Productive cough [Recovered/Resolved]

NARRATIVE: CASE EVENT DATE: 201512
